FAERS Safety Report 6864551-2 (Version None)
Quarter: 2010Q3

REPORT INFORMATION
  Report Type: 
  Country: None (occurrence: None)
  Receive Date: 20100721
  Receipt Date: 20080327
  Transmission Date: 20110219
  Serious: No
  Sender: FDA-Public Use
  Company Number: US-PFIZER INC-2008028633

PATIENT
  Sex: Female
  Weight: 99.09 kg

DRUGS (3)
  1. CHANTIX [Suspect]
     Indication: SMOKING CESSATION THERAPY
     Dates: start: 20080214
  2. PROZAC [Concomitant]
  3. SEROQUEL [Concomitant]

REACTIONS (3)
  - ABNORMAL DREAMS [None]
  - DECREASED APPETITE [None]
  - THINKING ABNORMAL [None]
